FAERS Safety Report 13062278 (Version 1)
Quarter: 2016Q4

REPORT INFORMATION
  Report Type: Spontaneous
  Country: US (occurrence: US)
  Receive Date: 20161226
  Receipt Date: 20161226
  Transmission Date: 20170207
  Serious: Yes (Other)
  Sender: FDA-Public Use
  Company Number: US-ASTELLAS-2016US050333

PATIENT
  Sex: Female

DRUGS (1)
  1. LEXISCAN [Suspect]
     Active Substance: REGADENOSON
     Indication: PRODUCT USED FOR UNKNOWN INDICATION
     Dosage: 0.4MG/5ML, UNKNOWN FREQ.
     Route: 042
     Dates: start: 20161219, end: 20161219

REACTIONS (5)
  - Feeling abnormal [Unknown]
  - Blood pressure decreased [Not Recovered/Not Resolved]
  - Unresponsive to stimuli [Unknown]
  - Dizziness [Unknown]
  - Malaise [Unknown]

NARRATIVE: CASE EVENT DATE: 20161219
